FAERS Safety Report 19329138 (Version 1)
Quarter: 2021Q2

REPORT INFORMATION
  Report Type: Spontaneous
  Country: US (occurrence: US)
  Receive Date: 20210528
  Receipt Date: 20210528
  Transmission Date: 20210717
  Serious: Yes (Hospitalization)
  Sender: FDA-Public Use
  Company Number: US-ASTRAZENECA-2021A472939

PATIENT
  Age: 63 Year
  Sex: Male

DRUGS (8)
  1. CETUXIMAB. [Suspect]
     Active Substance: CETUXIMAB
     Indication: METASTATIC SQUAMOUS CELL CARCINOMA
     Route: 065
  2. DURVALUMAB. [Suspect]
     Active Substance: DURVALUMAB
     Indication: METASTATIC SQUAMOUS CELL CARCINOMA
     Route: 042
  3. METFORMIN [Concomitant]
     Active Substance: METFORMIN HYDROCHLORIDE
  4. PEMBROLIZUMAB. [Concomitant]
     Active Substance: PEMBROLIZUMAB
  5. CETUXIMAB. [Suspect]
     Active Substance: CETUXIMAB
     Indication: METASTATIC SQUAMOUS CELL CARCINOMA
     Route: 065
  6. INSULIN GLARGINE [Concomitant]
     Active Substance: INSULIN GLARGINE
  7. PRANDIAL INSULIN LISPRO [Concomitant]
  8. DURVALUMAB. [Suspect]
     Active Substance: DURVALUMAB
     Indication: METASTATIC SQUAMOUS CELL CARCINOMA
     Route: 042

REACTIONS (2)
  - Insulin autoimmune syndrome [Recovering/Resolving]
  - Type 1 diabetes mellitus [Recovering/Resolving]
